FAERS Safety Report 5467661-X (Version None)
Quarter: 2007Q3

REPORT INFORMATION
  Report Type: 
  Country: None (occurrence: None)
  Receive Date: 20070921
  Receipt Date: 20070910
  Transmission Date: 20080115
  Serious: Yes (Life-Threatening)
  Sender: FDA-Public Use
  Company Number: 2007AL003761

PATIENT
  Age: 82 Year
  Sex: Female

DRUGS (1)
  1. DIGOXIN [Suspect]
     Indication: ATRIAL FIBRILLATION
     Dosage: 0.75 MG;X1

REACTIONS (7)
  - BRADYCARDIA [None]
  - CARDIOACTIVE DRUG LEVEL INCREASED [None]
  - ELECTROLYTE IMBALANCE [None]
  - ILL-DEFINED DISORDER [None]
  - NAUSEA [None]
  - THERAPEUTIC AGENT TOXICITY [None]
  - VOMITING [None]
